FAERS Safety Report 4609291-5 (Version None)
Quarter: 2005Q1

REPORT INFORMATION
  Report Type: 
  Country: None (occurrence: None)
  Receive Date: 20050314
  Receipt Date: 20050304
  Transmission Date: 20050727
  Serious: Yes (Hospitalization)
  Sender: FDA-Public Use
  Company Number: 2005-02-1326

PATIENT
  Age: 64 Year
  Sex: Female

DRUGS (6)
  1. FLUITRAN TABLETS ^LIKE NAQUA^ [Suspect]
     Indication: HYPERTENSION
     Dosage: 0.5 MG QD ORAL
     Route: 048
     Dates: start: 20050111, end: 20050209
  2. LIPITOR [Suspect]
     Indication: HYPERLIPIDAEMIA
     Dosage: 10 MG QD ORAL
     Route: 048
     Dates: end: 20050209
  3. PROBUCOL [Concomitant]
  4. ALACEPRIL [Concomitant]
  5. NIFEDIPINE [Concomitant]
  6. BETAXOLOL HYDROCHLORIDE [Concomitant]

REACTIONS (5)
  - ALANINE AMINOTRANSFERASE INCREASED [None]
  - ASPARTATE AMINOTRANSFERASE INCREASED [None]
  - LIVER DISORDER [None]
  - MALAISE [None]
  - VOMITING [None]
